FAERS Safety Report 18013694 (Version 1)
Quarter: 2020Q3

REPORT INFORMATION
  Report Type: Spontaneous
  Country: US (occurrence: US)
  Receive Date: 20200711
  Receipt Date: 20200711
  Transmission Date: 20201103
  Serious: Yes (Death)
  Sender: FDA-Public Use
  Company Number: None

PATIENT
  Age: 85 Year
  Sex: Female
  Weight: 63 kg

DRUGS (1)
  1. ELIQUIS [Suspect]
     Active Substance: APIXABAN
     Indication: ATRIAL FIBRILLATION
     Route: 048

REACTIONS (6)
  - Cerebral haemorrhage [None]
  - Pain in extremity [None]
  - Delusion [None]
  - Coma [None]
  - Urinary tract infection [None]
  - Circulatory collapse [None]

NARRATIVE: CASE EVENT DATE: 20190423
